FAERS Safety Report 5596491-3 (Version None)
Quarter: 2007Q4

REPORT INFORMATION
  Report Type: 
  Country: None (occurrence: None)
  Receive Date: 20071219
  Receipt Date: 20071030
  Transmission Date: 20080405
  Serious: No
  Sender: FDA-Public Use
  Company Number: US-WYE-H00990007

PATIENT
  Sex: Male

DRUGS (1)
  1. TORISEL [Suspect]
     Indication: RENAL CELL CARCINOMA STAGE UNSPECIFIED
     Dosage: 20 MG - FREQUENCY UNSPECIFIED, INTRAVENOUS
     Route: 042
     Dates: start: 20071030

REACTIONS (1)
  - INFUSION SITE EXTRAVASATION [None]
